FAERS Safety Report 7047645-0 (Version None)
Quarter: 2010Q4

REPORT INFORMATION
  Report Type: 
  Country: None (occurrence: None)
  Receive Date: 20101014
  Receipt Date: 20101014
  Transmission Date: 20110411
  Serious: Yes (Other)
  Sender: FDA-Public Use
  Company Number: None

PATIENT
  Age: 38 Year
  Sex: Female
  Weight: 56.6996 kg

DRUGS (2)
  1. OXYCONTIN [Suspect]
     Indication: HEPATIC ENZYME INCREASED
     Dosage: 20MG BID PO
     Route: 048
     Dates: start: 20101007, end: 20101013
  2. OXYCONTIN [Suspect]
     Indication: PAIN
     Dosage: 20MG BID PO
     Route: 048
     Dates: start: 20101007, end: 20101013

REACTIONS (9)
  - ABDOMINAL PAIN UPPER [None]
  - CONDITION AGGRAVATED [None]
  - CONSTIPATION [None]
  - DIARRHOEA [None]
  - HEADACHE [None]
  - INADEQUATE ANALGESIA [None]
  - NAUSEA [None]
  - PRODUCT FORMULATION ISSUE [None]
  - VOMITING [None]
